FAERS Safety Report 13627998 (Version 1)
Quarter: 2017Q2

REPORT INFORMATION
  Report Type: Spontaneous
  Country: US (occurrence: US)
  Receive Date: 20170531
  Receipt Date: 20170531
  Transmission Date: 20170830
  Serious: Yes (Hospitalization)
  Sender: FDA-Public Use
  Company Number: US-ASTELLAS-1686018

PATIENT
  Sex: Female

DRUGS (1)
  1. TARCEVA [Suspect]
     Active Substance: ERLOTINIB HYDROCHLORIDE
     Indication: LUNG NEOPLASM MALIGNANT
     Route: 048
     Dates: start: 20151203

REACTIONS (5)
  - Bronchitis [Not Recovered/Not Resolved]
  - Confusional state [Unknown]
  - Pruritus [Unknown]
  - Hyperhidrosis [Unknown]
  - Fatigue [Unknown]
